FAERS Safety Report 25131016 (Version 3)
Quarter: 2025Q3

REPORT INFORMATION
  Report Type: Report from Study
  Country: CA (occurrence: CA)
  Receive Date: 20250327
  Receipt Date: 20250918
  Transmission Date: 20251021
  Serious: Yes (Other)
  Sender: TAKEDA
  Company Number: CA-TAKEDA-2025TUS031324

PATIENT
  Age: 49 Year
  Sex: Female

DRUGS (10)
  1. VEDOLIZUMAB [Suspect]
     Active Substance: VEDOLIZUMAB
     Indication: Colitis ulcerative
  2. VEDOLIZUMAB [Suspect]
     Active Substance: VEDOLIZUMAB
     Dosage: 300 MILLIGRAM, Q4WEEKS
     Dates: start: 20250411
  3. VEDOLIZUMAB [Suspect]
     Active Substance: VEDOLIZUMAB
     Dosage: 300 MILLIGRAM, Q4WEEKS
  4. MESALAMINE [Concomitant]
     Active Substance: MESALAMINE
  5. SUMATRIPTAN AND NAPROXEN SODIUM [Concomitant]
     Active Substance: NAPROXEN SODIUM\SUMATRIPTAN SUCCINATE
  6. UBROGEPANT [Concomitant]
     Active Substance: UBROGEPANT
  7. CAMBIA [Concomitant]
     Active Substance: DICLOFENAC POTASSIUM
  8. TOLFENAMIC ACID [Concomitant]
     Active Substance: TOLFENAMIC ACID
  9. CALCIUM [Concomitant]
     Active Substance: CALCIUM
  10. FERROUS FUMARATE [Concomitant]
     Active Substance: FERROUS FUMARATE

REACTIONS (2)
  - Colitis ulcerative [Not Recovered/Not Resolved]
  - Off label use [Unknown]

NARRATIVE: CASE EVENT DATE: 20250411
